FAERS Safety Report 10057838 (Version 2)
Quarter: 2014Q2

REPORT INFORMATION
  Report Type: Spontaneous
  Country: DE (occurrence: DE)
  Receive Date: 20140404
  Receipt Date: 20140430
  Transmission Date: 20141212
  Serious: Yes (Hospitalization, Other)
  Sender: FDA-Public Use
  Company Number: DE-AMGEN INC.-DEUSP2014024106

PATIENT
  Age: 57 Year
  Sex: Female

DRUGS (3)
  1. ENBREL [Suspect]
     Indication: RHEUMATOID ARTHRITIS
     Dosage: 50 MG, WEEKLY
     Route: 065
     Dates: start: 20140313
  2. METHOTREXATE [Concomitant]
     Dosage: UNK
  3. CORTISON [Concomitant]
     Dosage: UNK

REACTIONS (3)
  - Dislocation of vertebra [Not Recovered/Not Resolved]
  - Intervertebral disc protrusion [Not Recovered/Not Resolved]
  - Lumbar spinal stenosis [Not Recovered/Not Resolved]
